FAERS Safety Report 10193811 (Version 1)
Quarter: 2014Q2

REPORT INFORMATION
  Report Type: Spontaneous
  Country: US (occurrence: US)
  Receive Date: 20140524
  Receipt Date: 20140524
  Transmission Date: 20141212
  Serious: No
  Sender: FDA-Public Use
  Company Number: US-SANOFI-AVENTIS-2013SA044417

PATIENT
  Sex: Female

DRUGS (3)
  1. SOLOSTAR [Suspect]
     Indication: TYPE 2 DIABETES MELLITUS
     Dosage: 65U AM/35U PM
  2. LANTUS SOLOSTAR [Suspect]
     Indication: TYPE 2 DIABETES MELLITUS
     Dosage: 65U AM/35U PM
     Route: 051
  3. HUMALOG [Concomitant]

REACTIONS (4)
  - Weight decreased [Unknown]
  - Malabsorption [Unknown]
  - Asthenia [Unknown]
  - Blood glucose decreased [Unknown]
